FAERS Safety Report 4339062-9 (Version None)
Quarter: 2004Q2

REPORT INFORMATION
  Report Type: 
  Country: None (occurrence: None)
  Receive Date: 20040415
  Receipt Date: 20031202
  Transmission Date: 20050107
  Serious: Yes (Other)
  Sender: FDA-Public Use
  Company Number: PHNU2003DE04257

PATIENT
  Sex: Male

DRUGS (4)
  1. LOCOL [Suspect]
     Indication: HYPERCHOLESTEROLAEMIA
  2. ASPIRIN [Suspect]
     Dosage: LOW DOSE
  3. ALLOPURINOL [Concomitant]
  4. SORTIS ^GOEDECKE^ [Suspect]
     Indication: HYPERCHOLESTEROLAEMIA
     Dosage: 20 MG, QD

REACTIONS (5)
  - COLONIC POLYP [None]
  - COLONOSCOPY NORMAL [None]
  - GASTROINTESTINAL HAEMORRHAGE [None]
  - HAEMATOCHEZIA [None]
  - POLYP [None]
